FAERS Safety Report 24696287 (Version 1)
Quarter: 2024Q4

REPORT INFORMATION
  Report Type: Other
  Country: FR (occurrence: FR)
  Receive Date: 20241204
  Receipt Date: 20241204
  Transmission Date: 20250115
  Serious: Yes (Other)
  Sender: APPCO PHARMA LLC
  Company Number: FR-Appco Pharma LLC-2166472

PATIENT
  Age: 57 Year
  Sex: Male

DRUGS (6)
  1. CLINDAMYCIN PALMITATE HYDROCHLORIDE [Suspect]
     Active Substance: CLINDAMYCIN PALMITATE HYDROCHLORIDE
     Indication: Antibiotic therapy
  2. COTRIMOXAZOLE [Suspect]
     Active Substance: SULFAMETHOXAZOLE\TRIMETHOPRIM
  3. FLUCONAZOLE [Concomitant]
     Active Substance: FLUCONAZOLE
  4. ERTAPENEM. [Concomitant]
  5. MYCAMINE [Concomitant]
     Active Substance: MICAFUNGIN SODIUM
  6. MEROPENEM [Concomitant]
     Active Substance: MEROPENEM

REACTIONS (1)
  - Hepatitis [Unknown]
